FAERS Safety Report 4773568-3 (Version None)
Quarter: 2005Q3

REPORT INFORMATION
  Report Type: 
  Country: None (occurrence: None)
  Receive Date: 20050920
  Receipt Date: 20050523
  Transmission Date: 20060218
  Serious: No
  Sender: FDA-Public Use
  Company Number: US-BRISTOL-MYERS SQUIBB COMPANY-12979241

PATIENT
  Age: 95 Year
  Sex: Male

DRUGS (1)
  1. BUSPAR [Suspect]
     Route: 048

REACTIONS (2)
  - NAUSEA [None]
  - VOMITING [None]
